FAERS Safety Report 9997439 (Version 1)
Quarter: 2014Q1

REPORT INFORMATION
  Report Type: Spontaneous
  Country: US (occurrence: US)
  Receive Date: 20140311
  Receipt Date: 20140311
  Transmission Date: 20141002
  Serious: No
  Sender: FDA-Public Use
  Company Number: US-GLAXOSMITHKLINE-A1044618A

PATIENT
  Age: 36 Year
  Sex: Male
  Weight: 106 kg

DRUGS (10)
  1. NICOTROL INHALER [Suspect]
     Indication: SMOKING CESSATION THERAPY
     Route: 065
  2. NICOTINE GUM [Suspect]
     Indication: SMOKING CESSATION THERAPY
     Route: 002
  3. NICOTINE LOZENGE [Suspect]
     Indication: SMOKING CESSATION THERAPY
     Route: 065
  4. NICOTROL INHALER [Suspect]
     Indication: SMOKING CESSATION THERAPY
  5. NICODERM PATCH [Suspect]
     Indication: SMOKING CESSATION THERAPY
     Route: 002
  6. NICOTINE PATCH [Suspect]
     Indication: SMOKING CESSATION THERAPY
     Route: 062
  7. CHANTIX [Suspect]
     Indication: SMOKING CESSATION THERAPY
     Route: 048
     Dates: start: 2013
  8. CHANTIX [Suspect]
     Indication: SMOKING CESSATION THERAPY
     Route: 048
     Dates: start: 20130622, end: 2013
  9. ANDROGEL [Suspect]
     Indication: BLOOD TESTOSTERONE DECREASED
     Route: 065
     Dates: start: 2013, end: 2013
  10. NADOLOL [Concomitant]
     Indication: TACHYCARDIA
     Dosage: 20MG TWICE PER DAY
     Route: 065

REACTIONS (10)
  - Depressed mood [Not Recovered/Not Resolved]
  - Thinking abnormal [Not Recovered/Not Resolved]
  - Abnormal behaviour [Not Recovered/Not Resolved]
  - Heart rate increased [Not Recovered/Not Resolved]
  - Abnormal dreams [Not Recovered/Not Resolved]
  - Sleep disorder [Not Recovered/Not Resolved]
  - Agitation [Not Recovered/Not Resolved]
  - Hostility [Not Recovered/Not Resolved]
  - Blood testosterone increased [Unknown]
  - Drug ineffective [Unknown]
